FAERS Safety Report 5063234-1 (Version None)
Quarter: 2006Q3

REPORT INFORMATION
  Report Type: 
  Country: None (occurrence: None)
  Receive Date: 20060724
  Receipt Date: 20060610
  Transmission Date: 20061208
  Serious: Yes (Other)
  Sender: FDA-Public Use
  Company Number: 2006065809

PATIENT
  Age: 43 Year
  Sex: Female
  Weight: 61.2356 kg

DRUGS (8)
  1. SOLU-MEDROL [Suspect]
     Indication: MULTIPLE SCLEROSIS
     Dosage: 1 GRAM (1 GRAM, 3 DAYS/WEEK EVERY 3 MONTHS), INTRAVENOUS
     Route: 042
     Dates: start: 20031101
  2. REBIF [Concomitant]
  3. NAPROXEN [Concomitant]
  4. XANAX [Concomitant]
  5. NEURONTIN [Concomitant]
  6. ADVIL [Concomitant]
  7. ALEVE [Concomitant]
  8. ALL OTHER THERAPEUTIC PRODUCTS (ALL OTHER THERAPEUTIC PRODUCTS) [Concomitant]

REACTIONS (6)
  - AGITATION [None]
  - HYPERSENSITIVITY [None]
  - PAIN [None]
  - PHARMACEUTICAL PRODUCT COMPLAINT [None]
  - REACTION TO DRUG EXCIPIENTS [None]
  - SOMNOLENCE [None]
